FAERS Safety Report 4789693-7 (Version None)
Quarter: 2005Q3

REPORT INFORMATION
  Report Type: 
  Country: None (occurrence: None)
  Receive Date: 20050914
  Receipt Date: 20050309
  Transmission Date: 20060218
  Serious: Yes (Death)
  Sender: FDA-Public Use
  Company Number: 163-20785-05030230

PATIENT
  Age: 66 Year
  Sex: Male

DRUGS (1)
  1. THALOMID [Suspect]
     Indication: PROSTATE CANCER
     Dosage: 50 MG, QHS, ORAL
     Route: 048
     Dates: start: 20040518, end: 20041123

REACTIONS (4)
  - DEATH [None]
  - DISEASE PROGRESSION [None]
  - METASTASES TO BONE [None]
  - SQUAMOUS CELL CARCINOMA [None]
